FAERS Safety Report 15838189 (Version 1)
Quarter: 2019Q1

REPORT INFORMATION
  Report Type: Spontaneous
  Country: PL (occurrence: PL)
  Receive Date: 20190117
  Receipt Date: 20190117
  Transmission Date: 20190417
  Serious: Yes (Hospitalization)
  Sender: FDA-Public Use
  Company Number: PHHY2019PL003171

PATIENT
  Age: 25 Year
  Sex: Female

DRUGS (1)
  1. AMOXICILLIN. [Suspect]
     Active Substance: AMOXICILLIN
     Indication: PRODUCT USED FOR UNKNOWN INDICATION
     Dosage: UNK
     Route: 065

REACTIONS (8)
  - Fatigue [Unknown]
  - Somnolence [Unknown]
  - Sinusitis [Recovering/Resolving]
  - Aphasia [Recovering/Resolving]
  - Subdural empyema [Recovering/Resolving]
  - Seizure [Recovering/Resolving]
  - Pyramidal tract syndrome [Recovering/Resolving]
  - Headache [Unknown]
